FAERS Safety Report 25531595 (Version 1)
Quarter: 2025Q3

REPORT INFORMATION
  Report Type: Spontaneous
  Country: NZ (occurrence: NZ)
  Receive Date: 20250709
  Receipt Date: 20250709
  Transmission Date: 20251020
  Serious: Yes (Death, Other)
  Sender: BAXTER
  Company Number: NZ-BAXTER-2025BAX017870

PATIENT
  Age: 50 Year
  Sex: Female

DRUGS (2)
  1. SODIUM CHLORIDE [Suspect]
     Active Substance: SODIUM CHLORIDE
     Indication: Haemodialysis
     Route: 065
  2. Bicart [Concomitant]
     Indication: Haemodialysis
     Route: 065

REACTIONS (1)
  - Death [Fatal]

NARRATIVE: CASE EVENT DATE: 20250626
